FAERS Safety Report 16127560 (Version 4)
Quarter: 2019Q2

REPORT INFORMATION
  Report Type: Spontaneous
  Country: US (occurrence: US)
  Receive Date: 20190328
  Receipt Date: 20190612
  Transmission Date: 20190711
  Serious: No
  Sender: FDA-Public Use
  Company Number: US-PFIZER INC-2016354869

PATIENT
  Age: 62 Year
  Sex: Female
  Weight: 88.89 kg

DRUGS (18)
  1. LYRICA [Suspect]
     Active Substance: PREGABALIN
     Indication: FIBROMYALGIA
     Dosage: 75 MG, 2X/DAY
  2. GABAPENTIN. [Concomitant]
     Active Substance: GABAPENTIN
     Dosage: 300 MG, 2X/DAY
     Route: 048
  3. SIMVASTATIN. [Concomitant]
     Active Substance: SIMVASTATIN
     Indication: BLOOD CHOLESTEROL INCREASED
     Dosage: 20 MG, 1X/DAY [NIGHTLY]
     Route: 048
     Dates: start: 2008
  4. BUPROPION XL [Concomitant]
     Active Substance: BUPROPION
     Indication: DEPRESSION
     Dosage: 300 MG, 1X/DAY (Q24HR (INTERVAL))
     Route: 048
  5. ALPRAZOLAM. [Concomitant]
     Active Substance: ALPRAZOLAM
     Indication: ANXIETY
     Dosage: 0.5 MG, AS NEEDED
     Route: 048
     Dates: end: 2017
  6. LYRICA [Suspect]
     Active Substance: PREGABALIN
     Dosage: 1 DF, DAILY
     Route: 048
     Dates: start: 20190304
  7. BACLOFEN. [Concomitant]
     Active Substance: BACLOFEN
     Indication: MUSCLE CONTRACTIONS INVOLUNTARY
  8. GABAPENTIN. [Concomitant]
     Active Substance: GABAPENTIN
     Dosage: 300 MG, 1X/DAY (AT BEDTIME)
     Route: 048
  9. BACLOFEN. [Concomitant]
     Active Substance: BACLOFEN
     Indication: MUSCLE SPASMS
     Dosage: 10 MG, 2X/DAY
     Route: 048
     Dates: start: 2010
  10. GABAPENTIN. [Concomitant]
     Active Substance: GABAPENTIN
     Dosage: 300 MG, 3X/DAY
     Route: 048
  11. SIMVASTATIN. [Concomitant]
     Active Substance: SIMVASTATIN
     Dosage: UNK
     Dates: start: 2017
  12. BUPROPION XL [Concomitant]
     Active Substance: BUPROPION
     Dosage: 375 MG, 1X/DAY
     Route: 048
     Dates: start: 2010
  13. BUPROPION XL [Concomitant]
     Active Substance: BUPROPION
     Dosage: UNK
     Dates: start: 20190105
  14. LYRICA [Suspect]
     Active Substance: PREGABALIN
     Indication: NEUROPATHY PERIPHERAL
     Dosage: 150 MG, 2X/DAY (ONE IN MORNING, ONE AT NIGHT)
     Route: 048
     Dates: start: 2017
  15. SIMVASTATIN. [Concomitant]
     Active Substance: SIMVASTATIN
     Dosage: 40 MG, 1X/DAY
  16. LYRICA [Suspect]
     Active Substance: PREGABALIN
     Dosage: 1 DF, ALTERNATE DAY
     Route: 048
  17. CITALOPRAM HYDROBROMIDE. [Concomitant]
     Active Substance: CITALOPRAM HYDROBROMIDE
     Dosage: 40 MG, 1X/DAY
     Dates: end: 2018
  18. HYDROCHLOROTHIAZIDE. [Concomitant]
     Active Substance: HYDROCHLOROTHIAZIDE
     Dosage: 25 MG, UNK
     Route: 048
     Dates: end: 2018

REACTIONS (3)
  - Intentional product misuse [Unknown]
  - Pruritus [Unknown]
  - Skin burning sensation [Unknown]

NARRATIVE: CASE EVENT DATE: 20190304
